FAERS Safety Report 21057427 (Version 1)
Quarter: 2022Q3

REPORT INFORMATION
  Report Type: Spontaneous
  Country: US (occurrence: None)
  Receive Date: 20220708
  Receipt Date: 20220708
  Transmission Date: 20221026
  Serious: No
  Sender: FDA-Public Use
  Company Number: None

PATIENT
  Age: 16 Year
  Sex: Female
  Weight: 49.5 kg

DRUGS (1)
  1. PROACTIV [Suspect]
     Active Substance: BENZOYL PEROXIDE
     Indication: Acne

REACTIONS (3)
  - Swelling face [None]
  - Eye swelling [None]
  - Pruritus [None]

NARRATIVE: CASE EVENT DATE: 20220707
